FAERS Safety Report 15308324 (Version 1)
Quarter: 2018Q3

REPORT INFORMATION
  Report Type: Spontaneous
  Country: US (occurrence: US)
  Receive Date: 20180822
  Receipt Date: 20180822
  Transmission Date: 20181010
  Serious: Yes (Other)
  Sender: FDA-Public Use
  Company Number: US-ASTRAZENECA-2018SF03999

PATIENT
  Age: 920 Month
  Sex: Female
  Weight: 53.5 kg

DRUGS (5)
  1. LYNPARZA [Suspect]
     Active Substance: OLAPARIB
     Indication: OVARIAN CANCER
     Route: 048
  2. LYNPARZA [Suspect]
     Active Substance: OLAPARIB
     Indication: OVARIAN CANCER
     Route: 048
     Dates: start: 201801, end: 201803
  3. POTASSIUM [Concomitant]
     Active Substance: POTASSIUM
     Route: 048
  4. LYNPARZA [Suspect]
     Active Substance: OLAPARIB
     Indication: OVARIAN CANCER
     Route: 048
  5. WARFARIN [Concomitant]
     Active Substance: WARFARIN
     Route: 048

REACTIONS (4)
  - Pain in extremity [Unknown]
  - Recurrent cancer [Recovered/Resolved]
  - Drug ineffective [Unknown]
  - Colon cancer [Unknown]

NARRATIVE: CASE EVENT DATE: 201803
